FAERS Safety Report 5590217-5 (Version None)
Quarter: 2008Q1

REPORT INFORMATION
  Report Type: 
  Country: None (occurrence: None)
  Receive Date: 20080114
  Receipt Date: 20080104
  Transmission Date: 20080703
  Serious: Yes (Disabling, Other)
  Sender: FDA-Public Use
  Company Number: GB-ASTRAZENECA-2008GB00009

PATIENT
  Age: 87 Year
  Sex: Male
  Weight: 60 kg

DRUGS (6)
  1. ESOMEPRAZOLE [Suspect]
     Route: 048
     Dates: start: 20071109, end: 20071201
  2. CLOPIDOGREL [Concomitant]
     Dates: start: 20021228
  3. DIGOXIN [Concomitant]
     Dates: start: 19990101
  4. FUROSEMIDE [Concomitant]
     Dates: start: 19990202
  5. LEVOTHYROXINE SODIUM [Concomitant]
     Dates: start: 19820101
  6. QUININE SULFATE [Concomitant]
     Dates: start: 19990101

REACTIONS (1)
  - COLOUR BLINDNESS [None]
